FAERS Safety Report 6747692-X (Version None)
Quarter: 2010Q2

REPORT INFORMATION
  Report Type: 
  Country: None (occurrence: None)
  Receive Date: 20100528
  Receipt Date: 20100524
  Transmission Date: 20101027
  Serious: Yes (Hospitalization)
  Sender: FDA-Public Use
  Company Number: PHHO2010US07870

PATIENT
  Sex: Male

DRUGS (10)
  1. AFINITOR [Suspect]
     Indication: WALDENSTROM'S MACROGLOBULINAEMIA
  2. RITUXIMAB COMP_RIT+ [Suspect]
     Indication: WALDENSTROM'S MACROGLOBULINAEMIA
     Dosage: 375 MG/M^2
     Route: 042
     Dates: start: 20100423
  3. ALLOPURINOL [Concomitant]
  4. OMEGA-3 FATTY ACIDS [Concomitant]
  5. GLUCOSAMINE [Concomitant]
  6. ATORVASTATIN [Concomitant]
  7. GABAPENTIN [Concomitant]
  8. CIPROFLOXACIN [Concomitant]
  9. COLACE [Concomitant]
  10. ZOCOR [Concomitant]

REACTIONS (3)
  - CHILLS [None]
  - NEUTROPENIA [None]
  - PYREXIA [None]
